FAERS Safety Report 20231971 (Version 1)
Quarter: 2021Q4

REPORT INFORMATION
  Report Type: Spontaneous
  Country: US (occurrence: US)
  Receive Date: 20211227
  Receipt Date: 20211227
  Transmission Date: 20220303
  Serious: No
  Sender: FDA-Public Use
  Company Number: US-BIOGEN-2021BI01080141

PATIENT
  Sex: Male

DRUGS (1)
  1. TECFIDERA [Suspect]
     Active Substance: DIMETHYL FUMARATE
     Indication: Multiple sclerosis
     Route: 065
     Dates: start: 20190802

REACTIONS (8)
  - Memory impairment [Unknown]
  - Gait inability [Unknown]
  - Balance disorder [Unknown]
  - Weight decreased [Unknown]
  - Gastric disorder [Unknown]
  - Cholelithiasis [Unknown]
  - Herpes zoster [Unknown]
  - Vomiting [Unknown]
